FAERS Safety Report 25751461 (Version 1)
Quarter: 2025Q3

REPORT INFORMATION
  Report Type: Spontaneous
  Country: CA (occurrence: CA)
  Receive Date: 20250902
  Receipt Date: 20250902
  Transmission Date: 20251021
  Serious: Yes (Other)
  Sender: MYLAN
  Company Number: CA-MYLANLABS-2025M1074322

PATIENT
  Age: 21 Year
  Sex: Male
  Weight: 50 kg

DRUGS (8)
  1. CLOZAPINE [Suspect]
     Active Substance: CLOZAPINE
     Indication: Psychotic disorder
  2. COLCHICINE [Concomitant]
     Active Substance: COLCHICINE
  3. DIPHENHYDRAMINE [Concomitant]
     Active Substance: DIPHENHYDRAMINE
  4. HALOPERIDOL [Concomitant]
     Active Substance: HALOPERIDOL
  5. LORAZEPAM [Concomitant]
     Active Substance: LORAZEPAM
  6. NAPROXEN [Concomitant]
     Active Substance: NAPROXEN
  7. PALIPERIDONE [Concomitant]
     Active Substance: PALIPERIDONE
  8. PANTOPRAZOLE [Concomitant]
     Active Substance: PANTOPRAZOLE

REACTIONS (9)
  - Brain natriuretic peptide increased [Recovering/Resolving]
  - C-reactive protein increased [Recovering/Resolving]
  - Troponin increased [Recovering/Resolving]
  - Chest pain [Recovering/Resolving]
  - Myalgia [Recovering/Resolving]
  - Myocarditis [Recovering/Resolving]
  - Myopericarditis [Recovering/Resolving]
  - Pyrexia [Recovering/Resolving]
  - Tachycardia [Recovering/Resolving]
